FAERS Safety Report 6349678-6 (Version None)
Quarter: 2009Q3

REPORT INFORMATION
  Report Type: 
  Country: None (occurrence: None)
  Receive Date: 20090911
  Receipt Date: 20090902
  Transmission Date: 20100115
  Serious: Yes (Hospitalization)
  Sender: FDA-Public Use
  Company Number: JP-AMGEN-US363558

PATIENT
  Sex: Female

DRUGS (2)
  1. ENBREL [Suspect]
     Indication: RHEUMATOID ARTHRITIS
     Route: 058
     Dates: start: 20090730, end: 20090901
  2. ISONIAZID [Suspect]
     Dosage: UNSPECIFIED
     Route: 048

REACTIONS (1)
  - HEPATIC FUNCTION ABNORMAL [None]
